FAERS Safety Report 18578514 (Version 1)
Quarter: 2020Q4

REPORT INFORMATION
  Report Type: Spontaneous
  Country: US (occurrence: US)
  Receive Date: 20201203
  Receipt Date: 20201203
  Transmission Date: 20210114
  Serious: Yes (Other)
  Sender: FDA-Public Use
  Company Number: None

PATIENT
  Age: 80 Year
  Sex: Male
  Weight: 104.3 kg

DRUGS (1)
  1. BAMLANIVIMAB. [Suspect]
     Active Substance: BAMLANIVIMAB
     Indication: COVID-19
     Route: 041
     Dates: start: 20201118, end: 20201118

REACTIONS (7)
  - Cough [None]
  - Abdominal pain [None]
  - Nephrolithiasis [None]
  - Swelling [None]
  - Fixed bowel loop [None]
  - Inguinal hernia [None]
  - Cholelithiasis [None]

NARRATIVE: CASE EVENT DATE: 20201126
